FAERS Safety Report 7649758-9 (Version None)
Quarter: 2011Q3

REPORT INFORMATION
  Report Type: 
  Country: None (occurrence: None)
  Receive Date: 20110802
  Receipt Date: 20110720
  Transmission Date: 20111222
  Serious: Yes (Other)
  Sender: FDA-Public Use
  Company Number: CA-ELI_LILLY_AND_COMPANY-CA201107005286

PATIENT
  Sex: Male

DRUGS (1)
  1. ZYPREXA [Suspect]
     Dosage: 7.5 MG, UNKNOWN
     Dates: start: 20040701, end: 20050401

REACTIONS (8)
  - DIABETES MELLITUS [None]
  - MEMORY IMPAIRMENT [None]
  - READING DISORDER [None]
  - CEREBROVASCULAR ACCIDENT [None]
  - VISUAL FIELD DEFECT [None]
  - APHASIA [None]
  - DYSGRAPHIA [None]
  - JUDGEMENT IMPAIRED [None]
